FAERS Safety Report 6235375-4 (Version None)
Quarter: 2009Q2

REPORT INFORMATION
  Report Type: 
  Country: None (occurrence: None)
  Receive Date: 20090618
  Receipt Date: 20080505
  Transmission Date: 20091009
  Serious: No
  Sender: FDA-Public Use
  Company Number: US-ASTRAZENECA-2008UW09306

PATIENT
  Age: 75 Year
  Sex: Male
  Weight: 88.5 kg

DRUGS (6)
  1. ENTOCORT EC [Suspect]
     Indication: CROHN'S DISEASE
     Route: 048
     Dates: start: 20080430
  2. GLIPIZIDE [Concomitant]
  3. COREG [Concomitant]
  4. PRAVASTATIN [Concomitant]
  5. LOTREL [Concomitant]
  6. ASACOL [Concomitant]

REACTIONS (1)
  - BLOOD GLUCOSE INCREASED [None]
